FAERS Safety Report 14394202 (Version 1)
Quarter: 2018Q1

REPORT INFORMATION
  Report Type: Spontaneous
  Country: US (occurrence: US)
  Receive Date: 20180116
  Receipt Date: 20180116
  Transmission Date: 20180509
  Serious: No
  Sender: FDA-Public Use
  Company Number: US-REGENERON PHARMACEUTICALS, INC.-2017-20446

PATIENT

DRUGS (3)
  1. EYLEA [Suspect]
     Active Substance: AFLIBERCEPT
     Dosage: 2 MG, LAST DOSE ADMINISTERED TO PATIENT FROM ANOTHER VIAL
     Route: 031
     Dates: start: 20170815, end: 20170815
  2. EYLEA [Suspect]
     Active Substance: AFLIBERCEPT
     Dosage: 2 MG, CONTAMINATED DOSE - NOT ADMINISTERED TO PATIENT
     Route: 031
     Dates: start: 20170815, end: 20170815
  3. EYLEA [Suspect]
     Active Substance: AFLIBERCEPT
     Indication: PRODUCT USED FOR UNKNOWN INDICATION
     Dosage: 2 MG, UNK
     Route: 031

REACTIONS (2)
  - Product contamination [Unknown]
  - Panic reaction [Unknown]

NARRATIVE: CASE EVENT DATE: 20170815
